FAERS Safety Report 6553945-0 (Version None)
Quarter: 2010Q1

REPORT INFORMATION
  Report Type: 
  Country: None (occurrence: None)
  Receive Date: 20100127
  Receipt Date: 20100112
  Transmission Date: 20100710
  Serious: No
  Sender: FDA-Public Use
  Company Number: US-JNJFOC-20100105153

PATIENT
  Sex: Female
  Weight: 54.43 kg

DRUGS (2)
  1. FENTANYL CITRATE [Suspect]
     Indication: NECK PAIN
     Route: 062
  2. FENTANYL CITRATE [Suspect]
     Route: 062

REACTIONS (6)
  - DIZZINESS [None]
  - HOT FLUSH [None]
  - PRODUCT QUALITY ISSUE [None]
  - SOMNOLENCE [None]
  - THERAPEUTIC RESPONSE INCREASED [None]
  - WRONG TECHNIQUE IN DRUG USAGE PROCESS [None]
